FAERS Safety Report 17670411 (Version 1)
Quarter: 2020Q2

REPORT INFORMATION
  Report Type: Spontaneous
  Country: FR (occurrence: FR)
  Receive Date: 20200415
  Receipt Date: 20200415
  Transmission Date: 20200713
  Serious: Yes (Life-Threatening, Hospitalization)
  Sender: FDA-Public Use
  Company Number: FR-TEVA-2020-FR-1223268

PATIENT
  Age: 92 Year
  Sex: Male
  Weight: 75 kg

DRUGS (7)
  1. CORDARONE [Suspect]
     Active Substance: AMIODARONE HYDROCHLORIDE
     Indication: ATRIAL FIBRILLATION
     Dosage: 4 DOSAGE FORMS
     Route: 048
  2. LEVOTHYROX 25 MICROGRAMMES, COMPRIME SECABLE [Concomitant]
     Active Substance: LEVOTHYROXINE
     Dosage: 1 DOSAGE FORM
     Route: 048
  3. ELIQUIS [Concomitant]
     Active Substance: APIXABAN
     Dosage: 2 DOSAGE FORMS
     Route: 048
  4. AMOXICILLINE [Suspect]
     Active Substance: AMOXICILLIN
     Indication: BRONCHITIS
     Dosage: UNSPECIFIED
     Route: 048
     Dates: start: 20200101, end: 20200108
  5. APROVEL 150 MG, COMPRIM PELLICULE [Concomitant]
     Dosage: 1 DOSAGE FORM
     Route: 048
  6. GILURYTMAL 50MG/10ML, SOLUTION INJECTABLE [Suspect]
     Active Substance: AJMALINE
     Indication: CARDIOVASCULAR EXAMINATION
     Route: 042
     Dates: start: 202001, end: 202001
  7. RINOCLENIL 100 MICROGRAMMES/DOSE, SUSPENSION POUR PULVERISATION NASALE [Concomitant]
     Active Substance: BECLOMETHASONE DIPROPIONATE
     Dosage: 4 DOSAGE FORMS
     Route: 045

REACTIONS (2)
  - Immune thrombocytopenia [Recovering/Resolving]
  - Blood loss anaemia [Recovered/Resolved]

NARRATIVE: CASE EVENT DATE: 20200205
